APPROVED DRUG PRODUCT: IBUPROFEN
Active Ingredient: IBUPROFEN
Strength: 400MG
Dosage Form/Route: TABLET;ORAL
Application: A213794 | Product #001 | TE Code: AB
Applicant: AUROBINDO PHARMA LTD
Approved: May 8, 2020 | RLD: No | RS: No | Type: RX